FAERS Safety Report 14525454 (Version 3)
Quarter: 2018Q3

REPORT INFORMATION
  Report Type: Spontaneous
  Country: GB (occurrence: GB)
  Receive Date: 20180213
  Receipt Date: 20180705
  Transmission Date: 20181010
  Serious: Yes (Hospitalization, Other)
  Sender: FDA-Public Use
  Company Number: GB-AUROBINDO-AUR-APL-2018-005729

PATIENT
  Sex: Male

DRUGS (4)
  1. NORVIR [Suspect]
     Active Substance: RITONAVIR
     Indication: PRODUCT USED FOR UNKNOWN INDICATION
     Dosage: 30 (UNSPECIFIED)
     Route: 048
     Dates: start: 20141001
  2. ISENTRESS [Suspect]
     Active Substance: RALTEGRAVIR POTASSIUM
     Indication: PRODUCT USED FOR UNKNOWN INDICATION
     Dosage: 60 (UNSPECIFIED)
     Route: 048
     Dates: start: 20141001
  3. ZIDOVUDINE CAPSULE [Suspect]
     Active Substance: ZIDOVUDINE
     Indication: PRODUCT USED FOR UNKNOWN INDICATION
     Dosage: UNK
     Route: 048
     Dates: start: 20141001
  4. REYATAZ [Suspect]
     Active Substance: ATAZANAVIR SULFATE
     Indication: PRODUCT USED FOR UNKNOWN INDICATION
     Dosage: 30 (UNSPECIFIED)
     Route: 048
     Dates: start: 20141001

REACTIONS (1)
  - Cerebrovascular accident [Unknown]
